FAERS Safety Report 14861422 (Version 1)
Quarter: 2018Q2

REPORT INFORMATION
  Report Type: Spontaneous
  Country: NL (occurrence: NL)
  Receive Date: 20180508
  Receipt Date: 20180508
  Transmission Date: 20180711
  Serious: Yes (Disabling)
  Sender: FDA-Public Use
  Company Number: NL-PFIZER INC-2018182039

PATIENT
  Age: 62 Year
  Sex: Male

DRUGS (5)
  1. GREPID [Concomitant]
     Active Substance: CLOPIDOGREL BESILATE
     Dosage: UNK
     Route: 048
  2. LOSANOX [Concomitant]
     Dosage: UNK
  3. AMLODIPINE BESILATE [Suspect]
     Active Substance: AMLODIPINE BESYLATE
     Indication: CARDIOVASCULAR DISORDER
     Dosage: 10 MG, UNK
     Route: 050
     Dates: start: 20090418, end: 20170331
  4. SIMVASTATINE [Concomitant]
     Active Substance: SIMVASTATIN
     Dosage: 40MG -} 20MG
  5. ISOSORBIDEMONONITRAAT [Concomitant]
     Dosage: UNK

REACTIONS (13)
  - Paraesthesia [Not Recovered/Not Resolved]
  - Dysgeusia [Not Recovered/Not Resolved]
  - Anxiety [Not Recovered/Not Resolved]
  - Pruritus [Not Recovered/Not Resolved]
  - Photosensitivity reaction [Not Recovered/Not Resolved]
  - Chromaturia [Not Recovered/Not Resolved]
  - Condition aggravated [Not Recovered/Not Resolved]
  - Gynaecomastia [Not Recovered/Not Resolved]
  - Dyspnoea [Not Recovered/Not Resolved]
  - Muscular weakness [Not Recovered/Not Resolved]
  - Panic reaction [Not Recovered/Not Resolved]
  - Confusional state [Not Recovered/Not Resolved]
  - Tinnitus [Not Recovered/Not Resolved]

NARRATIVE: CASE EVENT DATE: 2014
